FAERS Safety Report 9105897 (Version 1)
Quarter: 2013Q1

REPORT INFORMATION
  Report Type: Report from Study
  Country: CA (occurrence: CA)
  Receive Date: 20130220
  Receipt Date: 20130220
  Transmission Date: 20140127
  Serious: Yes (Other)
  Sender: FDA-Public Use
  Company Number: CA-JNJFOC-20130206263

PATIENT
  Age: 20 Year
  Sex: Female
  Weight: 80 kg

DRUGS (2)
  1. REMICADE [Suspect]
     Indication: CROHN^S DISEASE
     Dates: start: 20120528
  2. REMICADE [Suspect]
     Indication: CROHN^S DISEASE
     Dates: start: 20130211

REACTIONS (7)
  - Arthritis [Unknown]
  - Eczema [Unknown]
  - Infusion related reaction [Unknown]
  - Nausea [Unknown]
  - Vomiting [Unknown]
  - Flushing [Unknown]
  - Dyspnoea [Unknown]
